FAERS Safety Report 7493230-6 (Version None)
Quarter: 2011Q2

REPORT INFORMATION
  Report Type: 
  Country: None (occurrence: None)
  Receive Date: 20110520
  Receipt Date: 20110515
  Transmission Date: 20111010
  Serious: Yes (Death, Hospitalization)
  Sender: FDA-Public Use
  Company Number: MX-SHIRE-SPV1-2011-00803

PATIENT
  Sex: Female

DRUGS (1)
  1. ELAPRASE [Suspect]
     Indication: MUCOPOLYSACCHARIDOSIS II
     Dosage: UNK
     Route: 041
     Dates: start: 20101019, end: 20110513

REACTIONS (5)
  - ASPIRATION BRONCHIAL [None]
  - PNEUMONIA [None]
  - ACUTE RESPIRATORY DISTRESS SYNDROME [None]
  - CARDIO-RESPIRATORY ARREST [None]
  - ACUTE PULMONARY OEDEMA [None]
